FAERS Safety Report 9821134 (Version 1)
Quarter: 2014Q1

REPORT INFORMATION
  Report Type: Spontaneous
  Country: US (occurrence: None)
  Receive Date: 20140115
  Receipt Date: 20140115
  Transmission Date: 20141002
  Serious: Yes (Other)
  Sender: FDA-Public Use
  Company Number: None

PATIENT
  Age: 41 Year
  Sex: Female
  Weight: 86.18 kg

DRUGS (1)
  1. ORTHO EVRA [Suspect]

REACTIONS (4)
  - Menstruation irregular [None]
  - Headache [None]
  - Chest pain [None]
  - Muscular weakness [None]
